FAERS Safety Report 5392771-5 (Version None)
Quarter: 2007Q3

REPORT INFORMATION
  Report Type: 
  Country: None (occurrence: None)
  Receive Date: 20070720
  Receipt Date: 20070709
  Transmission Date: 20080115
  Serious: Yes (Hospitalization, Other)
  Sender: FDA-Public Use
  Company Number: MA-PFIZER INC-2007049450

PATIENT
  Age: 40 Year
  Sex: Female

DRUGS (4)
  1. NEURONTIN [Suspect]
     Indication: HERPES ZOSTER
     Route: 048
     Dates: start: 20070604, end: 20070605
  2. RIVOTRIL [Concomitant]
     Route: 048
  3. CORTICOSTEROIDS [Concomitant]
     Route: 048
  4. ANALGESICS [Concomitant]
     Route: 048

REACTIONS (3)
  - HYPERSENSITIVITY [None]
  - TOXIC EPIDERMAL NECROLYSIS [None]
  - TOXIC SKIN ERUPTION [None]
